FAERS Safety Report 8671360 (Version 3)
Quarter: 2012Q4

REPORT INFORMATION
  Report Type: 
  Country: US (occurrence: US)
  Receive Date: 20120718
  Receipt Date: 20121227
  Transmission Date: 20130627
  Serious: Yes (Death, Other)
  Sender: FDA-Public Use
  Company Number: US-GILEAD-2012-0057962

PATIENT
  Sex: Female

DRUGS (3)
  1. LETAIRIS [Suspect]
     Indication: PULMONARY HYPERTENSION
     Dosage: 10 mg, QD
     Route: 048
     Dates: start: 20120611
  2. LETAIRIS [Suspect]
     Indication: SARCOIDOSIS
     Dosage: 5 mg, UNK
     Route: 048
     Dates: start: 20120501, end: 20120611
  3. TORSEMIDE [Concomitant]

REACTIONS (4)
  - Death [Fatal]
  - Cor pulmonale [Unknown]
  - Feeling abnormal [Unknown]
  - Unevaluable event [Unknown]
